FAERS Safety Report 14153417 (Version 1)
Quarter: 2017Q4

REPORT INFORMATION
  Report Type: Spontaneous
  Country: US (occurrence: US)
  Receive Date: 20171102
  Receipt Date: 20171102
  Transmission Date: 20180321
  Serious: No
  Sender: FDA-Public Use
  Company Number: US-SA-2017SA153299

PATIENT
  Age: 79 Year
  Sex: Male

DRUGS (3)
  1. PRALUENT [Suspect]
     Active Substance: ALIROCUMAB
     Route: 058
  2. ALIROCUMAB PREFILLED PEN [Suspect]
     Active Substance: ALIROCUMAB
  3. TRELSTAR [Concomitant]
     Active Substance: TRIPTORELIN PAMOATE

REACTIONS (3)
  - Hot flush [Unknown]
  - Blood pressure increased [Unknown]
  - Condition aggravated [Unknown]
